FAERS Safety Report 7833184-3 (Version None)
Quarter: 2011Q4

REPORT INFORMATION
  Report Type: 
  Country: None (occurrence: None)
  Receive Date: 20111024
  Receipt Date: 20111012
  Transmission Date: 20120403
  Serious: Yes (Hospitalization)
  Sender: FDA-Public Use
  Company Number: GB-US-EMD SERONO, INC.-7089553

PATIENT
  Sex: Female

DRUGS (3)
  1. REBIF [Suspect]
  2. REBIF [Suspect]
  3. REBIF [Suspect]
     Indication: MULTIPLE SCLEROSIS

REACTIONS (8)
  - INFLUENZA [None]
  - MULTIPLE SCLEROSIS RELAPSE [None]
  - NAUSEA [None]
  - BLOOD GLUCOSE INCREASED [None]
  - TACHYCARDIA [None]
  - DIZZINESS [None]
  - DRUG INEFFECTIVE [None]
  - FEELING COLD [None]
